FAERS Safety Report 10550070 (Version 3)
Quarter: 2014Q4

REPORT INFORMATION
  Report Type: Spontaneous
  Country: IT (occurrence: IT)
  Receive Date: 20141028
  Receipt Date: 20141105
  Transmission Date: 20150529
  Serious: Yes (Hospitalization)
  Sender: FDA-Public Use
  Company Number: IT-009507513-1410ITA012078

PATIENT
  Age: 64 Year
  Sex: Female

DRUGS (4)
  1. PEGASYS [Suspect]
     Active Substance: PEGINTERFERON ALFA-2A
     Indication: CHRONIC HEPATITIS C
     Dosage: 135 MICROGRAM PER KILOGRAM, DAILY
     Route: 058
     Dates: start: 20140401, end: 20140425
  2. REBETOL [Suspect]
     Active Substance: RIBAVIRIN
     Dosage: 1000 MG/KG, DAILY
     Route: 048
     Dates: start: 20140408, end: 20140428
  3. PEGASYS [Suspect]
     Active Substance: PEGINTERFERON ALFA-2A
     Dosage: 180 MICROGRAM PER KILOGRAM, WEEKLY
     Dates: start: 2014
  4. TELAPREVIR [Suspect]
     Active Substance: TELAPREVIR
     Dosage: 375 MG, DAILY
     Route: 048
     Dates: start: 20140408, end: 20140428

REACTIONS (1)
  - Depression [Recovered/Resolved]

NARRATIVE: CASE EVENT DATE: 20140428
